FAERS Safety Report 4842940-5 (Version None)
Quarter: 2005Q4

REPORT INFORMATION
  Report Type: 
  Country: None (occurrence: None)
  Receive Date: 20051130
  Receipt Date: 20051118
  Transmission Date: 20060501
  Serious: Yes (Hospitalization)
  Sender: FDA-Public Use
  Company Number: ST-2005-008675

PATIENT
  Age: 50 Year
  Sex: Male

DRUGS (5)
  1. OLMETEC [Suspect]
     Indication: HYPERTENSION
     Dosage: 20 MG QD PO
     Dates: start: 20051018, end: 20051023
  2. URALYT [Concomitant]
  3. OZEX [Concomitant]
  4. SOLANTAL [Concomitant]
  5. ASTOMIN [Concomitant]

REACTIONS (3)
  - COLD SWEAT [None]
  - FEELING ABNORMAL [None]
  - HYPOTENSION [None]
